FAERS Safety Report 5041641-0 (Version None)
Quarter: 2006Q2

REPORT INFORMATION
  Report Type: 
  Country: None (occurrence: None)
  Receive Date: 20060601
  Receipt Date: 20060228
  Transmission Date: 20061013
  Serious: No
  Sender: FDA-Public Use
  Company Number: 2006PV009453

PATIENT
  Age: 46 Year
  Sex: Female
  Weight: 105.2345 kg

DRUGS (10)
  1. BYETTA [Suspect]
     Indication: DIABETES MELLITUS NON-INSULIN-DEPENDENT
     Dosage: 5 MCG; BID; SC
     Route: 058
     Dates: start: 20060127
  2. AVANDAMET [Concomitant]
  3. STARLIX [Concomitant]
  4. ALTACE [Concomitant]
  5. TRIAMTERENE AND HYDROCHLOROTHIAZIDE [Concomitant]
  6. WELLBUTRIN [Concomitant]
  7. LIPITOR [Concomitant]
  8. PREVACID [Concomitant]
  9. ALKA-SELTZER [Concomitant]
  10. ALBUTEROL [Concomitant]

REACTIONS (1)
  - ARTHRALGIA [None]
